FAERS Safety Report 5248441-7 (Version None)
Quarter: 2007Q1

REPORT INFORMATION
  Report Type: 
  Country: None (occurrence: None)
  Receive Date: 20070227
  Receipt Date: 20070223
  Transmission Date: 20070707
  Serious: Yes (Hospitalization)
  Sender: FDA-Public Use
  Company Number: AU-MERCK-0702AUS00130

PATIENT
  Sex: Female

DRUGS (1)
  1. FOSAMAX [Suspect]
     Route: 048
     Dates: start: 20010101, end: 20070101

REACTIONS (4)
  - CHEST PAIN [None]
  - GASTROINTESTINAL ULCER [None]
  - MALAISE [None]
  - VOMITING [None]
